FAERS Safety Report 5927914-5 (Version None)
Quarter: 2008Q4

REPORT INFORMATION
  Report Type: 
  Country: None (occurrence: None)
  Receive Date: 20081022
  Receipt Date: 20081022
  Transmission Date: 20090506
  Serious: Yes (Other)
  Sender: FDA-Public Use
  Company Number: None

PATIENT
  Age: 37 Year
  Sex: Female
  Weight: 58 kg

DRUGS (2)
  1. CYMBALTA [Suspect]
     Indication: FIBROMYALGIA
     Dosage: 60MG DAILY PO
     Route: 048
     Dates: start: 20071116, end: 20071116
  2. FLEXERIL [Suspect]
     Indication: FIBROMYALGIA
     Dosage: 10 MG DAILY AS NEEDED PO
     Route: 048
     Dates: start: 20071116, end: 20071116

REACTIONS (1)
  - ELECTROCARDIOGRAM QT PROLONGED [None]
